FAERS Safety Report 16841471 (Version 6)
Quarter: 2020Q1

REPORT INFORMATION
  Report Type: Spontaneous
  Country: US (occurrence: US)
  Receive Date: 20190923
  Receipt Date: 20200207
  Transmission Date: 20200409
  Serious: Yes (Hospitalization, Other)
  Sender: FDA-Public Use
  Company Number: US-JNJFOC-20190929244

PATIENT
  Age: 59 Year
  Sex: Female
  Weight: 99.88 kg

DRUGS (7)
  1. CLARITIN [Concomitant]
     Active Substance: LORATADINE
     Indication: MULTIPLE ALLERGIES
  2. ABILIFY [Suspect]
     Active Substance: ARIPIPRAZOLE
     Indication: PRODUCT USED FOR UNKNOWN INDICATION
     Route: 065
     Dates: start: 201910
  3. RISPERDAL [Suspect]
     Active Substance: RISPERIDONE
     Indication: PRODUCT USED FOR UNKNOWN INDICATION
     Route: 065
  4. ABILIFY [Suspect]
     Active Substance: ARIPIPRAZOLE
     Indication: PRODUCT USED FOR UNKNOWN INDICATION
     Route: 048
  5. HALOPERIDOL. [Concomitant]
     Active Substance: HALOPERIDOL
     Indication: PRODUCT USED FOR UNKNOWN INDICATION
  6. NAVANE [Concomitant]
     Active Substance: THIOTHIXENE
     Indication: PRODUCT USED FOR UNKNOWN INDICATION
  7. AMBIEN [Concomitant]
     Active Substance: ZOLPIDEM TARTRATE
     Indication: INSOMNIA

REACTIONS (12)
  - Drug ineffective [Unknown]
  - Water intoxication [Recovered/Resolved]
  - Anger [Unknown]
  - Abnormal behaviour [Unknown]
  - Delusion [Unknown]
  - Logorrhoea [Unknown]
  - Weight decreased [Unknown]
  - Screaming [Unknown]
  - Aggression [Unknown]
  - Coma [Recovered/Resolved]
  - Fall [Recovering/Resolving]
  - Polydipsia [Unknown]

NARRATIVE: CASE EVENT DATE: 20190720
